FAERS Safety Report 20747528 (Version 2)
Quarter: 2022Q4

REPORT INFORMATION
  Report Type: Spontaneous
  Country: US (occurrence: US)
  Receive Date: 20220425
  Receipt Date: 20221121
  Transmission Date: 20230112
  Serious: No
  Sender: FDA-Public Use
  Company Number: US-SA-SAC20220420001283

PATIENT
  Age: 59 Year
  Sex: Female

DRUGS (2)
  1. KEVZARA [Suspect]
     Active Substance: SARILUMAB
     Indication: Rheumatoid arthritis
     Dosage: 100 MG/ML, QOW
     Route: 058
     Dates: start: 201811
  2. KEVZARA [Suspect]
     Active Substance: SARILUMAB
     Dosage: 200 MG, QOW
     Route: 058
     Dates: start: 20220304

REACTIONS (2)
  - Localised infection [Unknown]
  - Drug ineffective [Unknown]
